FAERS Safety Report 6248055-6 (Version None)
Quarter: 2009Q2

REPORT INFORMATION
  Report Type: 
  Country: None (occurrence: None)
  Receive Date: 20090626
  Receipt Date: 20090623
  Transmission Date: 20091009
  Serious: Yes (Other)
  Sender: FDA-Public Use
  Company Number: US-JNJCH-2009017323

PATIENT
  Age: 73 Year
  Sex: Female
  Weight: 65.8 kg

DRUGS (1)
  1. VISINE PURE TEARS [Suspect]
     Indication: DRY EYE
     Dosage: TEXT:1 DROP IN EACH EYE ONCE DAILY
     Route: 047
     Dates: start: 20090621, end: 20090622

REACTIONS (2)
  - BLOOD PRESSURE INCREASED [None]
  - BLOOD PRESSURE SYSTOLIC INCREASED [None]
